FAERS Safety Report 5032790-1 (Version None)
Quarter: 2006Q2

REPORT INFORMATION
  Report Type: 
  Country: None (occurrence: None)
  Receive Date: 20060515
  Receipt Date: 20060301
  Transmission Date: 20061013
  Serious: No
  Sender: FDA-Public Use
  Company Number: S06-USA-00740-01

PATIENT
  Age: 69 Year
  Sex: Male

DRUGS (16)
  1. NAMENDA [Suspect]
     Indication: AMNESIA
     Dosage: 5 MG QD PO
     Route: 048
     Dates: start: 20050901, end: 20050101
  2. NAMENDA [Suspect]
     Indication: AMNESIA
     Dosage: 10 MG QHS PO
     Route: 048
     Dates: start: 20050101
  3. NAMENDA [Suspect]
     Indication: AMNESIA
     Dosage: 10 MG QOD PO
     Route: 048
  4. NAMENDA [Suspect]
     Indication: AMNESIA
     Dosage: 5 MG QOD PO
     Route: 048
  5. HYDROCHLOROTHIAZIDE [Concomitant]
  6. FOLBEE (FOLIC ACID/VITAMIN B6/VITAMIN B12) [Concomitant]
  7. TOPROL-XL [Concomitant]
  8. ALLOPURINOL [Concomitant]
  9. SAW PALMETTO [Concomitant]
  10. ZINC [Concomitant]
  11. ASCORBIC ACID [Concomitant]
  12. ST. JOHN'S WORT [Concomitant]
  13. GARLIC [Concomitant]
  14. GLUCOSAMINE CHONDROITIN [Concomitant]
  15. MILK THISTLE [Concomitant]
  16. GINKO BILOBA [Concomitant]

REACTIONS (2)
  - HYPERSOMNIA [None]
  - SOMNOLENCE [None]
